FAERS Safety Report 5221687-X (Version None)
Quarter: 2007Q1

REPORT INFORMATION
  Report Type: 
  Country: None (occurrence: None)
  Receive Date: 20070129
  Receipt Date: 20070116
  Transmission Date: 20070707
  Serious: Yes (Hospitalization)
  Sender: FDA-Public Use
  Company Number: PHFR2006GB03335

PATIENT
  Age: 71 Year
  Sex: Female

DRUGS (5)
  1. CLOZARIL [Suspect]
     Indication: SCHIZOPHRENIA
     Dosage: 200 MG/DAY
     Route: 048
     Dates: start: 20051228
  2. OMEPRAZOLE [Concomitant]
     Dosage: 20 MG, QD
     Route: 065
  3. BENDROFLUMETHIAZIDE [Concomitant]
     Dosage: 2.5 MG, QD
     Route: 065
  4. MOVICOL [Concomitant]
     Dosage: 1 OT, BID
  5. METOCLOPRAMIDE [Concomitant]
     Dosage: 10 MG, TID
     Route: 065

REACTIONS (5)
  - ACUTE ABDOMEN [None]
  - BLOOD ALKALINE PHOSPHATASE INCREASED [None]
  - BLOOD BILIRUBIN INCREASED [None]
  - CHOLECYSTITIS [None]
  - COUGH [None]
